FAERS Safety Report 24153008 (Version 4)
Quarter: 2024Q3

REPORT INFORMATION
  Report Type: Spontaneous
  Country: DE (occurrence: DE)
  Receive Date: 20240730
  Receipt Date: 20240820
  Transmission Date: 20241016
  Serious: No
  Sender: UCB
  Company Number: DE-UCBSA-2024037648

PATIENT
  Sex: Male

DRUGS (1)
  1. NEUPRO [Suspect]
     Active Substance: ROTIGOTINE
     Indication: Restless legs syndrome
     Dosage: 3 MILLIGRAM, ONCE DAILY (QD)
     Route: 062
     Dates: start: 202404

REACTIONS (4)
  - Skin wrinkling [Unknown]
  - Application site erythema [Unknown]
  - Product adhesion issue [Unknown]
  - Device use error [Unknown]
